FAERS Safety Report 18473002 (Version 1)
Quarter: 2020Q4

REPORT INFORMATION
  Report Type: Spontaneous
  Country: US (occurrence: US)
  Receive Date: 20201104
  Receipt Date: 20201104
  Transmission Date: 20210114
  Serious: Yes (Other)
  Sender: FDA-Public Use
  Company Number: None

PATIENT
  Age: 37 Year
  Sex: Male
  Weight: 47 kg

DRUGS (28)
  1. ACETAMINOPHEN. [Concomitant]
     Active Substance: ACETAMINOPHEN
  2. ALBUMIN [Concomitant]
     Active Substance: ALBUMIN HUMAN
  3. AMPICILLIN [Concomitant]
     Active Substance: AMPICILLIN
  4. CHLOROTHIAZIDE. [Concomitant]
     Active Substance: CHLOROTHIAZIDE
  5. CLONAZEPAM. [Concomitant]
     Active Substance: CLONAZEPAM
  6. ACETAZOLAMIDE. [Concomitant]
     Active Substance: ACETAZOLAMIDE
  7. ALBUTEROL INHALER [Concomitant]
     Active Substance: ALBUTEROL
  8. ASPIRIN 81 MG [Concomitant]
     Active Substance: ASPIRIN
  9. BUMETANIDE. [Concomitant]
     Active Substance: BUMETANIDE
  10. CALCIUM GLUCONATE. [Concomitant]
     Active Substance: CALCIUM GLUCONATE
  11. CEFAZOLIN [Concomitant]
     Active Substance: CEFAZOLIN
  12. CHLORHEXIDINE [Suspect]
     Active Substance: CHLORHEXIDINE
     Indication: ANTIBIOTIC PROPHYLAXIS
     Route: 002
     Dates: start: 20200730, end: 20201028
  13. ALBTEROL-IPRATOPIUM [Concomitant]
  14. ATOVAQUONE. [Concomitant]
     Active Substance: ATOVAQUONE
  15. BENZONATATE. [Concomitant]
     Active Substance: BENZONATATE
  16. BUDESONIDE-FORMOTEROL [Concomitant]
     Active Substance: BUDESONIDE\FORMOTEROL
  17. CALCIUM CHLORIDE. [Concomitant]
     Active Substance: CALCIUM CHLORIDE
  18. CEFEPIME [Concomitant]
     Active Substance: CEFEPIME HYDROCHLORIDE
  19. AMLODIIPINE [Concomitant]
  20. AMPICILLIN/SULBACTAM [Concomitant]
     Active Substance: AMPICILLIN SODIUM\SULBACTAM SODIUM
  21. CEFTRIAXONE. [Concomitant]
     Active Substance: CEFTRIAXONE
  22. CISATRACURIUM. [Concomitant]
     Active Substance: CISATRACURIUM
  23. ALPRAZOLAM. [Concomitant]
     Active Substance: ALPRAZOLAM
  24. ARTIFICIAL TEARS [Concomitant]
     Active Substance: GLYCERIN\HYPROMELLOSES\POLYETHYLENE GLYCOL 400
  25. BACITRACIN STERILE POWDER [Concomitant]
  26. AZITHROMYCIN ANHYDROUS. [Concomitant]
     Active Substance: AZITHROMYCIN ANHYDROUS
  27. BALSAM PERU-CASTOR OIL [Concomitant]
  28. CHLORHEXIDINE [Concomitant]
     Active Substance: CHLORHEXIDINE

REACTIONS (3)
  - Recalled product [None]
  - Burkholderia infection [None]
  - Suspected transmission of an infectious agent via product [None]

NARRATIVE: CASE EVENT DATE: 20201014
